FAERS Safety Report 15142680 (Version 1)
Quarter: 2018Q3

REPORT INFORMATION
  Report Type: Spontaneous
  Country: US (occurrence: US)
  Receive Date: 20180713
  Receipt Date: 20180713
  Transmission Date: 20181010
  Serious: Yes (Hospitalization, Other)
  Sender: FDA-Public Use
  Company Number: US-OTSUKA-2018_016965

PATIENT
  Sex: Female

DRUGS (12)
  1. SEROQUEL [Concomitant]
     Active Substance: QUETIAPINE FUMARATE
     Indication: PRODUCT USED FOR UNKNOWN INDICATION
     Dosage: 100 MG, AT BEDTIME
     Route: 065
  2. SEROQUEL [Concomitant]
     Active Substance: QUETIAPINE FUMARATE
     Dosage: 200 MG, QD (NIGHTLY)
     Route: 065
  3. LUNESTA [Concomitant]
     Active Substance: ESZOPICLONE
     Indication: INSOMNIA
     Dosage: 3 MG, PRN
     Route: 065
  4. TOPAMAX [Concomitant]
     Active Substance: TOPIRAMATE
     Dosage: 100 MG, BID
     Route: 065
  5. ABILIFY [Suspect]
     Active Substance: ARIPIPRAZOLE
     Indication: PSYCHOTIC DISORDER
  6. WELLBUTRIN XL [Concomitant]
     Active Substance: BUPROPION HYDROCHLORIDE
     Indication: PRODUCT USED FOR UNKNOWN INDICATION
     Dosage: 150 MG, QD
     Route: 065
  7. CYMBALTA [Suspect]
     Active Substance: DULOXETINE HYDROCHLORIDE
     Indication: DEPRESSION
     Dosage: 60 MG, (2?0?0) IN MORNING
     Route: 065
  8. KLONOPIN [Concomitant]
     Active Substance: CLONAZEPAM
     Indication: ANXIETY
     Dosage: 0.5 MG, BID
     Route: 065
  9. TRILEPTAL [Concomitant]
     Active Substance: OXCARBAZEPINE
     Indication: PRODUCT USED FOR UNKNOWN INDICATION
     Dosage: 150 MG, BID
     Route: 065
  10. TOPAMAX [Concomitant]
     Active Substance: TOPIRAMATE
     Indication: PRODUCT USED FOR UNKNOWN INDICATION
     Dosage: 50 MG, BID
     Route: 065
  11. ABILIFY [Suspect]
     Active Substance: ARIPIPRAZOLE
     Indication: MAJOR DEPRESSION
     Dosage: 10 MG, QD
     Route: 065
     Dates: start: 2011, end: 201301
  12. ATIVAN [Concomitant]
     Active Substance: LORAZEPAM
     Indication: ANXIETY
     Dosage: 1 MG, 6 HR PRN
     Route: 065

REACTIONS (24)
  - Weight increased [Unknown]
  - Neuropsychiatric symptoms [Unknown]
  - Emotional distress [Unknown]
  - Feeling abnormal [Unknown]
  - Lethargy [Unknown]
  - Anxiety [Not Recovered/Not Resolved]
  - Paranoia [Unknown]
  - Irritability [Unknown]
  - Insomnia [Unknown]
  - Product use in unapproved indication [Unknown]
  - Depression [Not Recovered/Not Resolved]
  - Mood swings [Unknown]
  - Memory impairment [Unknown]
  - Nausea [Unknown]
  - Gambling disorder [Recovered/Resolved]
  - Abdominal discomfort [Unknown]
  - Depressed mood [Unknown]
  - Disturbance in attention [Unknown]
  - Mental disorder [Unknown]
  - Injury [Unknown]
  - Malaise [Unknown]
  - Anger [Not Recovered/Not Resolved]
  - Economic problem [Unknown]
  - Somnolence [Unknown]
